FAERS Safety Report 4380148-0 (Version None)
Quarter: 2004Q2

REPORT INFORMATION
  Report Type: 
  Country: None (occurrence: None)
  Receive Date: 20040614
  Receipt Date: 20040401
  Transmission Date: 20050107
  Serious: No
  Sender: FDA-Public Use
  Company Number: M04-341-103

PATIENT
  Sex: Male

DRUGS (1)
  1. VELCADE [Suspect]
     Dosage: INTRAVENOUS
     Route: 042
     Dates: start: 20040319

REACTIONS (1)
  - INJECTION SITE NODULE [None]
